FAERS Safety Report 10408853 (Version 1)
Quarter: 2014Q3

REPORT INFORMATION
  Report Type: Spontaneous
  Country: US (occurrence: US)
  Receive Date: 20140826
  Receipt Date: 20140826
  Transmission Date: 20150326
  Serious: No
  Sender: FDA-Public Use
  Company Number: US-BAYER-2014-127379

PATIENT
  Age: 42 Year
  Sex: Male
  Weight: 131.52 kg

DRUGS (1)
  1. ALEVE [Suspect]
     Active Substance: NAPROXEN SODIUM
     Indication: INFLAMMATION
     Dosage: 2 DF, 2 DF FIRST DOSE THEN 2 DF 6 HOURS LATER
     Route: 048
     Dates: start: 20140821

REACTIONS (2)
  - Extra dose administered [None]
  - Intentional product misuse [None]

NARRATIVE: CASE EVENT DATE: 20140821
